FAERS Safety Report 5866504-X (Version None)
Quarter: 2008Q3

REPORT INFORMATION
  Report Type: 
  Country: None (occurrence: None)
  Receive Date: 20080902
  Receipt Date: 20080902
  Transmission Date: 20090109
  Serious: Yes (Hospitalization)
  Sender: FDA-Public Use
  Company Number: PHEH1996US00106

PATIENT
  Sex: Male
  Weight: 82 kg

DRUGS (7)
  1. SANDIMMUNE [Suspect]
     Dosage: UNK
     Route: 048
     Dates: start: 19951210
  2. IMURAN [Concomitant]
  3. PREDNISONE TAB [Concomitant]
  4. ASPIRIN [Concomitant]
  5. ZANTAC [Concomitant]
  6. LASIX [Concomitant]
  7. PRAVACHOL [Concomitant]

REACTIONS (5)
  - ASTHENIA [None]
  - CYTOMEGALOVIRUS INFECTION [None]
  - FATIGUE [None]
  - MALAISE [None]
  - PYREXIA [None]
